FAERS Safety Report 9915551 (Version 2)
Quarter: 2014Q1

REPORT INFORMATION
  Report Type: Report from Study
  Country: FR (occurrence: FR)
  Receive Date: 20140221
  Receipt Date: 20140319
  Transmission Date: 20141002
  Serious: Yes (Other)
  Sender: FDA-Public Use
  Company Number: FR-ROCHE-1352041

PATIENT
  Age: 77 Year
  Sex: Female
  Weight: 87 kg

DRUGS (17)
  1. RITUXIMAB [Suspect]
     Indication: CENTRAL NERVOUS SYSTEM LYMPHOMA
     Dosage: LAST DOSE PRIOR TO EVENT ON 22/JAN/2014.
     Route: 041
     Dates: start: 20140122
  2. LENALIDOMIDE [Suspect]
     Indication: CENTRAL NERVOUS SYSTEM LYMPHOMA
     Dosage: LAST DOSE PRIOR TO EVENT ON 10/FEB/2014, CUMULATIVE DOSE: 400 MG
     Route: 048
     Dates: start: 20140122
  3. DEXAMETHASONE [Suspect]
     Indication: CENTRAL NERVOUS SYSTEM LYMPHOMA
     Dosage: LAST DOSE PRIOR TO EVENT ON 25/JAN/2014: CUMULATIVE DOSE: 160 MG
     Route: 048
     Dates: start: 20140122
  4. DEXAMETHASONE [Suspect]
     Indication: MALIGNANT LYMPHOID NEOPLASM
  5. ASPEGIC (FRANCE) [Concomitant]
  6. TAHOR [Concomitant]
     Indication: HYPERCHOLESTEROLAEMIA
     Route: 065
  7. LEVOTHYROX [Concomitant]
     Indication: HYPOTHYROIDISM
  8. MOTILIULM (FRANCE) [Concomitant]
  9. ALPRAZOLAM [Concomitant]
     Route: 065
  10. ATACAND [Concomitant]
     Dosage: IN THE MORNING
     Route: 065
  11. INEXIUM [Concomitant]
     Route: 065
  12. STILNOX [Concomitant]
     Route: 065
  13. BACTRIM [Concomitant]
     Dosage: IN THE MORNING
     Route: 065
  14. LEDERFOLINE [Concomitant]
     Route: 065
  15. LYRICA [Concomitant]
     Indication: HYPERCHOLESTEROLAEMIA
     Route: 065
  16. DUPHALAC [Concomitant]
  17. REVLIMID [Concomitant]
     Dosage: IN THE EVENING FOR 21 DAYS
     Route: 065
     Dates: start: 20140218

REACTIONS (1)
  - Phlebitis [Not Recovered/Not Resolved]
